FAERS Safety Report 20742964 (Version 1)
Quarter: 2022Q2

REPORT INFORMATION
  Report Type: Report from Study
  Country: MX (occurrence: MX)
  Receive Date: 20220425
  Receipt Date: 20220425
  Transmission Date: 20220721
  Serious: Yes (Other)
  Sender: FDA-Public Use
  Company Number: MX-NOVARTISPH-NVSC2022MX092353

PATIENT
  Sex: Female
  Weight: 60 kg

DRUGS (4)
  1. HYDROCHLOROTHIAZIDE\VALSARTAN [Suspect]
     Active Substance: HYDROCHLOROTHIAZIDE\VALSARTAN
     Indication: Hypertension
     Dosage: 1 DOSAGE FORM, QD,8 YEARS AGO
     Route: 048
     Dates: start: 2014
  2. DIOVAN [Suspect]
     Active Substance: VALSARTAN
     Indication: Hypertension
     Dosage: 1 DOSAGE FORM, QD
     Route: 048
     Dates: start: 2019
  3. ACENOCOUMAROL [Concomitant]
     Active Substance: ACENOCOUMAROL
     Indication: Anticoagulant therapy
     Dosage: 0.75 DOSAGE FORM,4 DAYS OF THE WEEK ? TABLETS AND 3 DAYS OF THE WEEK HALF
     Route: 048
     Dates: start: 20170213
  4. METOPROLOL [Concomitant]
     Active Substance: METOPROLOL
     Indication: Arrhythmia
     Dosage: 1 DOSAGE FORM, QD
     Route: 048
     Dates: start: 20170213

REACTIONS (7)
  - Arrhythmia [Unknown]
  - Swelling [Unknown]
  - Thyroid disorder [Not Recovered/Not Resolved]
  - Contusion [Unknown]
  - Feeling abnormal [Unknown]
  - Headache [Unknown]
  - Fatigue [Unknown]
